FAERS Safety Report 15122297 (Version 1)
Quarter: 2018Q3

REPORT INFORMATION
  Report Type: Spontaneous
  Country: US (occurrence: US)
  Receive Date: 20180613
  Receipt Date: 20180613
  Transmission Date: 20181010
  Serious: Yes (Hospitalization)
  Sender: FDA-Public Use
  Company Number: None

PATIENT
  Age: 82 Year
  Sex: Male

DRUGS (9)
  1. METOPR [Concomitant]
  2. MYCOPHEN [Concomitant]
     Active Substance: MYCOPHENOLATE MOFETIL
  3. IRON SUP [Concomitant]
  4. TORSEMID [Concomitant]
     Active Substance: TORSEMIDE
  5. ZORTRESS [Suspect]
     Active Substance: EVEROLIMUS
     Indication: RENAL TRANSPLANT
     Route: 048
     Dates: start: 20150708
  6. LEVOTHYROX [Suspect]
     Active Substance: LEVOTHYROXINE
  7. TACROLIMUS. [Concomitant]
     Active Substance: TACROLIMUS
  8. CALCITRIOL 0.25MCG CAP [Suspect]
     Active Substance: CALCITRIOL
     Indication: RENAL TRANSPLANT
     Route: 048
     Dates: start: 20150708
  9. WARFARIN [Concomitant]
     Active Substance: WARFARIN

REACTIONS (2)
  - Cardiac disorder [None]
  - Oedema [None]

NARRATIVE: CASE EVENT DATE: 201805
